FAERS Safety Report 5769643-7 (Version None)
Quarter: 2008Q2

REPORT INFORMATION
  Report Type: 
  Country: None (occurrence: None)
  Receive Date: 20080612
  Receipt Date: 20080404
  Transmission Date: 20081010
  Serious: No
  Sender: FDA-Public Use
  Company Number: US-ABBOTT-08P-163-0445505-00

PATIENT
  Sex: Female
  Weight: 64.468 kg

DRUGS (3)
  1. HUMIRA [Suspect]
     Indication: CROHN'S DISEASE
     Route: 058
     Dates: start: 20080404, end: 20080404
  2. HUMIRA [Suspect]
     Route: 058
  3. PREDNISONE TAB [Concomitant]
     Indication: CROHN'S DISEASE
     Dosage: 30MG DAILY
     Route: 048
     Dates: start: 20070101

REACTIONS (2)
  - DIPLOPIA [None]
  - DIZZINESS [None]
